FAERS Safety Report 23111190 (Version 1)
Quarter: 2023Q4

REPORT INFORMATION
  Report Type: Report from Study
  Country: FR (occurrence: FR)
  Receive Date: 20231026
  Receipt Date: 20231026
  Transmission Date: 20240109
  Serious: Yes (Other)
  Sender: FDA-Public Use
  Company Number: FR-JAZZ PHARMACEUTICALS-2021-FR-012350

PATIENT

DRUGS (3)
  1. DEFITELIO [Suspect]
     Active Substance: DEFIBROTIDE SODIUM
     Indication: Prophylaxis
     Dosage: THERAPY DETAILS NOT PROVIDED
     Route: 065
  2. HEPARIN SODIUM [Concomitant]
     Active Substance: HEPARIN SODIUM
  3. SODIUM [Concomitant]
     Active Substance: SODIUM

REACTIONS (2)
  - Venoocclusive disease [Unknown]
  - Off label use [Unknown]
